FAERS Safety Report 12569862 (Version 4)
Quarter: 2016Q4

REPORT INFORMATION
  Report Type: Spontaneous
  Country: US (occurrence: US)
  Receive Date: 20160719
  Receipt Date: 20161004
  Transmission Date: 20170207
  Serious: No
  Sender: FDA-Public Use
  Company Number: US-GLAXOSMITHKLINE-US2016GSK099570

PATIENT
  Age: 65 Year
  Sex: Male

DRUGS (2)
  1. TANZEUM [Suspect]
     Active Substance: ALBIGLUTIDE
     Indication: GLUCOSE TOLERANCE IMPAIRED
     Dosage: 30 MG, WE
     Route: 042
     Dates: start: 201603
  2. TANZEUM [Suspect]
     Active Substance: ALBIGLUTIDE
     Dosage: UNK, U
     Route: 042

REACTIONS (4)
  - Device use error [Unknown]
  - Product use issue [Not Recovered/Not Resolved]
  - Exposure via skin contact [Unknown]
  - Product quality issue [Unknown]

NARRATIVE: CASE EVENT DATE: 201603
